FAERS Safety Report 7813812-9 (Version None)
Quarter: 2011Q4

REPORT INFORMATION
  Report Type: 
  Country: None (occurrence: None)
  Receive Date: 20111014
  Receipt Date: 20111011
  Transmission Date: 20120403
  Serious: Yes (Other)
  Sender: FDA-Public Use
  Company Number: US-PFIZER INC-2011243449

PATIENT

DRUGS (2)
  1. CELEBREX [Suspect]
     Dosage: UNK
  2. IRON [Suspect]
     Dosage: UNK

REACTIONS (3)
  - ABDOMINAL DISCOMFORT [None]
  - HAEMOGLOBIN DECREASED [None]
  - GASTRIC HAEMORRHAGE [None]
